FAERS Safety Report 11515111 (Version 1)
Quarter: 2015Q3

REPORT INFORMATION
  Report Type: Spontaneous
  Country: AU (occurrence: AU)
  Receive Date: 20150916
  Receipt Date: 20150916
  Transmission Date: 20151125
  Serious: Yes (Death)
  Sender: FDA-Public Use
  Company Number: PHHY2013AU020094

PATIENT
  Age: 39 Year
  Sex: Male

DRUGS (2)
  1. SANDOSTATIN LAR DEPOT [Suspect]
     Active Substance: OCTREOTIDE ACETATE
     Dosage: UNK UKN, UNK
     Dates: start: 20130213
  2. SANDOSTATIN LAR DEPOT [Suspect]
     Active Substance: OCTREOTIDE ACETATE
     Indication: DIARRHOEA
     Dosage: UNK UKN, UNK

REACTIONS (5)
  - Diarrhoea [Unknown]
  - Dehydration [Unknown]
  - Death [Fatal]
  - Malaise [Unknown]
  - Renal impairment [Unknown]

NARRATIVE: CASE EVENT DATE: 20130215
